FAERS Safety Report 13255535 (Version 1)
Quarter: 2017Q1

REPORT INFORMATION
  Report Type: Spontaneous
  Country: US (occurrence: US)
  Receive Date: 20170218
  Receipt Date: 20170218
  Transmission Date: 20170428
  Serious: Yes (Other)
  Sender: FDA-Public Use
  Company Number: None

PATIENT
  Age: 33 Year
  Sex: Female
  Weight: 105.7 kg

DRUGS (12)
  1. CYPROHEOTADINE [Concomitant]
  2. TESTOSTERONE. [Concomitant]
     Active Substance: TESTOSTERONE
  3. VEGAN SHAKEOLOGY [Concomitant]
  4. VEGAN VITAMIN D3 [Concomitant]
  5. VITAMIN C [Concomitant]
     Active Substance: ASCORBIC ACID
  6. BENADRYL [Concomitant]
     Active Substance: DIPHENHYDRAMINE HYDROCHLORIDE
  7. KLONOPIN [Concomitant]
     Active Substance: CLONAZEPAM
  8. ALORA PATCH [Concomitant]
  9. VEGAN MULTIVITAMIN [Concomitant]
  10. ARMPIT THYROID [Concomitant]
  11. FLONASE [Concomitant]
     Active Substance: FLUTICASONE PROPIONATE
  12. LEVAQUIN [Suspect]
     Active Substance: LEVOFLOXACIN
     Indication: UPPER RESPIRATORY TRACT INFECTION
     Dosage: ?          QUANTITY:1 TABLET(S);?
     Route: 048
     Dates: start: 20170216, end: 20170217

REACTIONS (1)
  - Drug hypersensitivity [None]

NARRATIVE: CASE EVENT DATE: 20170217
